FAERS Safety Report 17712827 (Version 4)
Quarter: 2020Q3

REPORT INFORMATION
  Report Type: Report from Study
  Country: None (occurrence: US)
  Receive Date: 20200427
  Receipt Date: 20200924
  Transmission Date: 20201102
  Serious: Yes (Other)
  Sender: FDA-Public Use
  Company Number: US-ABBVIE-20K-163-3372681-00

PATIENT
  Sex: Male
  Weight: 83.99 kg

DRUGS (1)
  1. HUMIRA [Suspect]
     Active Substance: ADALIMUMAB
     Indication: RHEUMATOID ARTHRITIS
     Route: 058

REACTIONS (6)
  - Neuropathy peripheral [Not Recovered/Not Resolved]
  - Coronary arterial stent insertion [Recovered/Resolved]
  - Spontaneous amputation [Not Recovered/Not Resolved]
  - Tobacco user [Unknown]
  - Stent placement [Recovered/Resolved]
  - Peripheral vascular disorder [Not Recovered/Not Resolved]
